FAERS Safety Report 24915894 (Version 1)
Quarter: 2025Q1

REPORT INFORMATION
  Report Type: Spontaneous
  Country: US (occurrence: US)
  Receive Date: 20250203
  Receipt Date: 20250203
  Transmission Date: 20250408
  Serious: Yes (Other)
  Sender: MYLAN
  Company Number: US-MYLANLABS-2025M1007302

PATIENT
  Age: 57 Year
  Sex: Male

DRUGS (4)
  1. PREDNISOLONE [Suspect]
     Active Substance: PREDNISOLONE
     Indication: Atopic keratoconjunctivitis
     Route: 061
  2. TACROLIMUS [Suspect]
     Active Substance: TACROLIMUS
     Indication: Atopic keratoconjunctivitis
     Route: 061
  3. TRIAMCINOLONE [Suspect]
     Active Substance: TRIAMCINOLONE
     Indication: Atopic keratoconjunctivitis
     Route: 057
  4. CYCLOSPORINE [Concomitant]
     Active Substance: CYCLOSPORINE
     Indication: Atopic keratoconjunctivitis
     Route: 061

REACTIONS (5)
  - Visual acuity reduced [Recovering/Resolving]
  - Eye pruritus [Unknown]
  - Vision blurred [Unknown]
  - Drug ineffective for unapproved indication [Unknown]
  - Off label use [Unknown]
